FAERS Safety Report 11612778 (Version 2)
Quarter: 2015Q4

REPORT INFORMATION
  Report Type: Spontaneous
  Country: US (occurrence: US)
  Receive Date: 20151008
  Receipt Date: 20151210
  Transmission Date: 20160304
  Serious: No
  Sender: FDA-Public Use
  Company Number: US-JNJFOC-20150921123

PATIENT
  Sex: Female

DRUGS (1)
  1. INVOKANA [Suspect]
     Active Substance: CANAGLIFLOZIN
     Indication: PRODUCT USED FOR UNKNOWN INDICATION
     Route: 065
     Dates: start: 2015

REACTIONS (4)
  - Emotional distress [Unknown]
  - Pain [Unknown]
  - Adverse drug reaction [Unknown]
  - Malaise [Unknown]

NARRATIVE: CASE EVENT DATE: 2015
